FAERS Safety Report 9054594 (Version 1)
Quarter: 2013Q1

REPORT INFORMATION
  Report Type: Report from Study
  Country: GB (occurrence: GB)
  Receive Date: 20130208
  Receipt Date: 20130208
  Transmission Date: 20140127
  Serious: Yes (Hospitalization, Other)
  Sender: FDA-Public Use
  Company Number: GB-ABBOTT-13P-167-1047739-00

PATIENT
  Age: 39 None
  Sex: Female
  Weight: 74.9 kg

DRUGS (5)
  1. HUMIRA [Suspect]
     Indication: PSORIASIS
     Route: 058
     Dates: start: 20110407, end: 20120905
  2. HUMIRA [Suspect]
     Route: 058
     Dates: start: 20121217
  3. FOLIC ACID [Concomitant]
     Indication: PRODUCT USED FOR UNKNOWN INDICATION
     Dates: start: 20120801
  4. CODEINE [Concomitant]
     Indication: PRODUCT USED FOR UNKNOWN INDICATION
     Dates: start: 20121210, end: 20121231
  5. FERROUS SULFATE [Concomitant]
     Indication: PRODUCT USED FOR UNKNOWN INDICATION
     Dates: start: 20121210, end: 20121231

REACTIONS (2)
  - Abortion spontaneous [Unknown]
  - Haemoglobin decreased [Recovered/Resolved]
